FAERS Safety Report 9169311 (Version 2)
Quarter: 2013Q2

REPORT INFORMATION
  Report Type: Report from Study
  Country: DE (occurrence: DE)
  Receive Date: 20130318
  Receipt Date: 20130528
  Transmission Date: 20140414
  Serious: Yes (Hospitalization, Other)
  Sender: FDA-Public Use
  Company Number: DE-BAXTER-2013BAX009253

PATIENT
  Age: 44 Year
  Sex: 0
  Weight: 73 kg

DRUGS (2)
  1. ADVATE 250 I.E. [Suspect]
     Indication: FACTOR VIII DEFICIENCY
     Route: 042
     Dates: start: 20040922
  2. ADVATE 250 I.E. [Suspect]
     Indication: PROPHYLAXIS
     Route: 042

REACTIONS (1)
  - Inguinal hernia [Recovered/Resolved]
